FAERS Safety Report 7551568-8 (Version None)
Quarter: 2011Q2

REPORT INFORMATION
  Report Type: 
  Country: None (occurrence: None)
  Receive Date: 20110609
  Receipt Date: 20110524
  Transmission Date: 20111010
  Serious: Yes (Death, Other)
  Sender: FDA-Public Use
  Company Number: 2011MA006395

PATIENT
  Age: 27 Year
  Sex: Male

DRUGS (1)
  1. TRAMADOL HYDROCHLORIDE [Suspect]
     Indication: OVERDOSE
     Dosage: 1000 MG, 1X,

REACTIONS (10)
  - WHITE BLOOD CELL COUNT INCREASED [None]
  - COMA [None]
  - SEROTONIN SYNDROME [None]
  - CONVULSION [None]
  - TACHYCARDIA [None]
  - BLOOD CREATINE PHOSPHOKINASE INCREASED [None]
  - HYPERTHERMIA [None]
  - BLOOD CREATININE INCREASED [None]
  - MYOCLONUS [None]
  - MULTIPLE DRUG OVERDOSE [None]
